FAERS Safety Report 14664323 (Version 1)
Quarter: 2018Q1

REPORT INFORMATION
  Report Type: Spontaneous
  Country: KW (occurrence: KW)
  Receive Date: 20180319
  Receipt Date: 20180319
  Transmission Date: 20180509
  Serious: Yes (Life-Threatening, Hospitalization, Disabling)
  Sender: FDA-Public Use
  Company Number: None

PATIENT
  Age: 32 Year
  Sex: Female
  Weight: 90 kg

DRUGS (1)
  1. SAXENDA [Suspect]
     Active Substance: LIRAGLUTIDE
     Indication: WEIGHT CONTROL

REACTIONS (5)
  - Asthenia [None]
  - Hypotension [None]
  - Orthostatic hypotension [None]
  - Dehydration [None]
  - Addison^s disease [None]

NARRATIVE: CASE EVENT DATE: 20180313
